FAERS Safety Report 22107007 (Version 1)
Quarter: 2023Q1

REPORT INFORMATION
  Report Type: Spontaneous
  Country: US (occurrence: US)
  Receive Date: 20230317
  Receipt Date: 20230317
  Transmission Date: 20230418
  Serious: No
  Sender: FDA-Public Use
  Company Number: US-SANOFI-01528143

PATIENT

DRUGS (1)
  1. ALLEGRA ALLERGY [Suspect]
     Active Substance: FEXOFENADINE HYDROCHLORIDE
     Dosage: ONCE A DAY
     Route: 065

REACTIONS (3)
  - Eye pain [Unknown]
  - Asthenopia [Unknown]
  - Abnormal sensation in eye [Unknown]
